FAERS Safety Report 4948730-7 (Version None)
Quarter: 2006Q1

REPORT INFORMATION
  Report Type: 
  Country: None (occurrence: None)
  Receive Date: 20060313
  Receipt Date: 20060303
  Transmission Date: 20060701
  Serious: Yes (Death)
  Sender: FDA-Public Use
  Company Number: GBWYE450506MAR06

PATIENT
  Sex: Male

DRUGS (1)
  1. EFFEXOR XR [Suspect]

REACTIONS (2)
  - COMPLETED SUICIDE [None]
  - DRUG WITHDRAWAL SYNDROME [None]
